FAERS Safety Report 8229829-9 (Version None)
Quarter: 2012Q1

REPORT INFORMATION
  Report Type: 
  Country: None (occurrence: None)
  Receive Date: 20120323
  Receipt Date: 20120309
  Transmission Date: 20120608
  Serious: Yes (Death)
  Sender: FDA-Public Use
  Company Number: US-MYLANLABS-2012S1005706

PATIENT
  Age: 52 Year
  Sex: Male

DRUGS (4)
  1. FLUDARABINE PHOSPHATE [Concomitant]
     Indication: STEM CELL TRANSPLANT
     Dosage: 5 DOSES OF 30 MG/M2
     Route: 065
  2. ALEMTUZUMAB [Concomitant]
     Indication: STEM CELL TRANSPLANT
     Dosage: 5 DOSES OF 20MG
     Route: 065
  3. TACROLIMUS [Suspect]
     Indication: STEM CELL TRANSPLANT
     Dosage: TARGET BLOOD LEVEL 5-15 NG/ML
     Route: 065
  4. MELPHALAN HYDROCHLORIDE [Concomitant]
     Indication: STEM CELL TRANSPLANT
     Dosage: 100 MG/M2
     Route: 065

REACTIONS (7)
  - MENTAL STATUS CHANGES [None]
  - LETHARGY [None]
  - MICROANGIOPATHY [None]
  - HYPERTENSION [None]
  - CEREBRAL HAEMORRHAGE [None]
  - AGITATION [None]
  - APHASIA [None]
